FAERS Safety Report 8848537 (Version 1)
Quarter: 2012Q4

REPORT INFORMATION
  Report Type: 
  Country: US (occurrence: US)
  Receive Date: 20121018
  Receipt Date: 20121018
  Transmission Date: 20130627
  Serious: Yes (Other)
  Sender: FDA-Public Use
  Company Number: US-ROCHE-1140628

PATIENT
  Sex: Male
  Weight: 45.6 kg

DRUGS (4)
  1. PROTROPIN [Suspect]
     Indication: DWARFISM
     Route: 058
  2. PROTROPIN [Suspect]
     Indication: GROWTH HORMONE DEFICIENCY
  3. NUTROPIN [Suspect]
     Indication: DWARFISM
     Route: 058
     Dates: start: 199205
  4. NUTROPIN [Suspect]
     Indication: GROWTH HORMONE DEFICIENCY

REACTIONS (4)
  - Joint range of motion decreased [Unknown]
  - Scoliosis [Unknown]
  - Acne [Unknown]
  - Drug dose omission [Unknown]
